FAERS Safety Report 20648997 (Version 1)
Quarter: 2022Q1

REPORT INFORMATION
  Report Type: Spontaneous
  Country: US (occurrence: None)
  Receive Date: 20220328
  Receipt Date: 20220328
  Transmission Date: 20220423
  Serious: Yes (Death)
  Sender: FDA-Public Use
  Company Number: None

PATIENT
  Age: 72 Year
  Sex: Female
  Weight: 68.49 kg

DRUGS (3)
  1. RITUXAN [Suspect]
     Active Substance: RITUXIMAB
     Indication: Granulomatosis with polyangiitis
     Dosage: OTHER QUANTITY : 648.75MG;?FREQUENCY : WEEKLY;?
     Route: 042
     Dates: start: 201911
  2. RITUXAN [Suspect]
     Active Substance: RITUXIMAB
     Indication: Granulomatosis with polyangiitis
  3. RITUXAN [Suspect]
     Active Substance: RITUXIMAB
     Dosage: OTHER QUANTITY : 648.75MG;?FREQUENCY : WEEKLY;?
     Route: 042

REACTIONS (1)
  - COVID-19 [None]
